FAERS Safety Report 24147367 (Version 9)
Quarter: 2024Q4

REPORT INFORMATION
  Report Type: Spontaneous
  Country: CO (occurrence: CO)
  Receive Date: 20240729
  Receipt Date: 20241218
  Transmission Date: 20250114
  Serious: No
  Sender: PFIZER
  Company Number: CO-PFIZER INC-202400222106

PATIENT
  Age: 21 Year
  Sex: Female
  Weight: 45 kg

DRUGS (9)
  1. GENOTROPIN [Suspect]
     Active Substance: SOMATROPIN
     Indication: Hypothalamo-pituitary disorder
     Dosage: 0.8 MG, DAILY
     Route: 058
     Dates: start: 2010, end: 202406
  2. GENOTROPIN [Suspect]
     Active Substance: SOMATROPIN
     Indication: Growth hormone deficiency
  3. GENOTROPIN [Suspect]
     Active Substance: SOMATROPIN
     Indication: Adrenal insufficiency
  4. LEVOTHYROXINE [Concomitant]
     Active Substance: LEVOTHYROXINE
     Indication: Hypothalamo-pituitary disorder
     Dosage: 100 UG, DAILY
  5. LEVOTHYROXINE [Concomitant]
     Active Substance: LEVOTHYROXINE
     Indication: Congenital aplasia
  6. ESTROGEN NOS [Concomitant]
     Active Substance: ESTROGENS
     Indication: Hypothalamo-pituitary disorder
     Dosage: UNK, DAILY
  7. ESTROGEN NOS [Concomitant]
     Active Substance: ESTROGENS
     Indication: Congenital aplasia
  8. PREDNISOLONE [Concomitant]
     Active Substance: PREDNISOLONE
     Indication: Adrenal insufficiency
     Dosage: 5 MG, DAILY
  9. PREDNISOLONE [Concomitant]
     Active Substance: PREDNISOLONE
     Indication: Congenital aplasia

REACTIONS (5)
  - Jaundice [Unknown]
  - Asthenia [Unknown]
  - Drug dose omission by device [Not Recovered/Not Resolved]
  - Device occlusion [Unknown]
  - Expired device used [Unknown]

NARRATIVE: CASE EVENT DATE: 20240716
